FAERS Safety Report 6820352-2 (Version None)
Quarter: 2010Q3

REPORT INFORMATION
  Report Type: 
  Country: None (occurrence: None)
  Receive Date: 20100707
  Receipt Date: 20100625
  Transmission Date: 20110219
  Serious: Yes (Hospitalization)
  Sender: FDA-Public Use
  Company Number: DE-TEVA-232285ISR

PATIENT
  Age: 79 Year
  Sex: Female

DRUGS (3)
  1. ALENDRONIC ACID [Suspect]
     Indication: OSTEOPOROSIS
     Route: 048
     Dates: start: 20070101
  2. RIVASTIGMINE [Suspect]
     Indication: DEMENTIA
     Route: 062
     Dates: start: 20090901, end: 20100305
  3. CALCIUM D3 [Suspect]
     Indication: OSTEOPOROSIS
     Route: 048
     Dates: start: 20070101, end: 20100305

REACTIONS (2)
  - HYPERCALCAEMIA [None]
  - VOMITING [None]
